FAERS Safety Report 8736845 (Version 3)
Quarter: 2014Q4

REPORT INFORMATION
  Report Type: Spontaneous
  Country: US (occurrence: None)
  Receive Date: 20120805
  Receipt Date: 20141125
  Transmission Date: 20150529
  Serious: Yes (Hospitalization)
  Sender: FDA-Public Use
  Company Number: JPI-P-023077

PATIENT
  Age: 36 Year
  Sex: Female
  Weight: 65.9 kg

DRUGS (2)
  1. MULTIPLE UNSPECIFIED MEDICATIONS [Concomitant]
     Active Substance: UNSPECIFIED INGREDIENT
  2. XYREM [Suspect]
     Active Substance: SODIUM OXYBATE
     Indication: NARCOLEPSY
     Dosage: SEE IMAGE
     Route: 048
     Dates: start: 20110412, end: 2011

REACTIONS (31)
  - Poor quality sleep [None]
  - Skin discolouration [None]
  - Nausea [None]
  - Asthenia [None]
  - Intestinal obstruction [None]
  - Dyspnoea [None]
  - Muscular weakness [None]
  - Sleep talking [None]
  - Malaise [None]
  - Dizziness [None]
  - Vertigo [None]
  - Thinking abnormal [None]
  - Incision site infection [None]
  - Lethargy [None]
  - Retching [None]
  - Fatigue [None]
  - Hypoaesthesia [None]
  - Middle insomnia [None]
  - Musculoskeletal stiffness [None]
  - Impaired healing [None]
  - Colonic pseudo-obstruction [None]
  - Pain in extremity [None]
  - Dysstasia [None]
  - Urinary tract infection [None]
  - Muscle spasms [None]
  - Vomiting [None]
  - Gait disturbance [None]
  - Paraesthesia [None]
  - Amnesia [None]
  - Chest discomfort [None]
  - Sleep terror [None]
